FAERS Safety Report 5090398-6 (Version None)
Quarter: 2006Q3

REPORT INFORMATION
  Report Type: 
  Country: None (occurrence: None)
  Receive Date: 20060823
  Receipt Date: 20060817
  Transmission Date: 20061208
  Serious: Yes (Other)
  Sender: FDA-Public Use
  Company Number: 2006-08-1128

PATIENT

DRUGS (2)
  1. PEG-INTRON [Suspect]
     Dosage: ^LOW DOSE^
  2. REBETOL [Suspect]
     Dosage: UNKNOWN ORAL

REACTIONS (1)
  - DIABETIC KETOACIDOSIS [None]
